FAERS Safety Report 9676893 (Version 2)
Quarter: 2013Q4

REPORT INFORMATION
  Report Type: Report from Study
  Country: CA (occurrence: CA)
  Receive Date: 20131107
  Receipt Date: 20131205
  Transmission Date: 20140711
  Serious: Yes (Hospitalization)
  Sender: FDA-Public Use
  Company Number: CA-US-EMD SERONO, INC.-7247072

PATIENT
  Age: 47 Year
  Sex: Female

DRUGS (4)
  1. REBIF [Suspect]
     Indication: PRODUCT USED FOR UNKNOWN INDICATION
     Route: 058
     Dates: start: 20070126
  2. DITROPAN                           /00538901/ [Concomitant]
     Indication: NEUROGENIC BLADDER
     Route: 048
     Dates: start: 2011
  3. BACLOFEN [Concomitant]
     Indication: MUSCLE SPASTICITY
     Route: 048
     Dates: start: 2011
  4. EFFEXOR-XR [Concomitant]
     Indication: DEPRESSION
     Route: 048

REACTIONS (4)
  - Pneumonia [Recovering/Resolving]
  - Cystitis [Recovering/Resolving]
  - Urinary incontinence [Recovering/Resolving]
  - Gait disturbance [Recovering/Resolving]
